FAERS Safety Report 8079208-2 (Version None)
Quarter: 2012Q1

REPORT INFORMATION
  Report Type: 
  Country: None (occurrence: None)
  Receive Date: 20120128
  Receipt Date: 20110816
  Transmission Date: 20120608
  Serious: No
  Sender: FDA-Public Use
  Company Number: US-ABBOTT-11P-163-0847306-00

PATIENT
  Age: 40 Year
  Sex: Female

DRUGS (4)
  1. HUMIRA [Suspect]
     Indication: PSORIASIS
     Dates: start: 20110701
  2. COZAAR [Concomitant]
     Indication: DIABETES MELLITUS
     Dosage: MEDICATION INDICATES HIGH BLOOD PRESURE
     Route: 048
  3. HUMIRA [Suspect]
     Dates: start: 20110801
  4. METFFORMIN HYDROCHLORIDE [Concomitant]
     Indication: DIABETES MELLITUS
     Route: 048

REACTIONS (1)
  - PSORIASIS [None]
